FAERS Safety Report 10079058 (Version 1)
Quarter: 2014Q2

REPORT INFORMATION
  Report Type: Spontaneous
  Country: US (occurrence: None)
  Receive Date: 20140411
  Receipt Date: 20140411
  Transmission Date: 20141212
  Serious: Yes (Other)
  Sender: FDA-Public Use
  Company Number: None

PATIENT
  Age: 42 Year
  Sex: Female
  Weight: 94.35 kg

DRUGS (17)
  1. FLUVOXAMINE [Suspect]
     Indication: DEPRESSION
     Dosage: 1 PILL BEDTIME BY MOUTH
     Route: 048
     Dates: start: 2012
  2. ORENCIA [Concomitant]
  3. METHOTREXATE [Concomitant]
  4. POPRANOLOL(INDERAL) [Concomitant]
  5. UNIRECT(MOEXIPRIL/HCTZ) [Concomitant]
  6. SIMVASTATIN [Concomitant]
  7. METFORMIN [Concomitant]
  8. MAGENSIUM [Concomitant]
  9. FOLIC ACID [Concomitant]
  10. BYETTA [Concomitant]
  11. CENTRUM MULTIVITAMIN [Concomitant]
  12. CALCIUM WITH D [Concomitant]
  13. VOLTAREN GEL (DICLOFENAC) [Concomitant]
  14. VITAMIN E [Concomitant]
  15. CLOBETASOL OIN [Concomitant]
  16. LORAZEPAM [Concomitant]
  17. ALEVE [Concomitant]

REACTIONS (3)
  - Anger [None]
  - Withdrawal syndrome [None]
  - Abnormal behaviour [None]
